FAERS Safety Report 25281288 (Version 2)
Quarter: 2025Q3

REPORT INFORMATION
  Report Type: Report from Study
  Country: US (occurrence: US)
  Receive Date: 20250508
  Receipt Date: 20250903
  Transmission Date: 20251021
  Serious: No
  Sender: SUNOVION
  Company Number: US-SMPA-2025SPA004574AA

PATIENT
  Age: 70 Year
  Sex: Male

DRUGS (11)
  1. ORGOVYX [Suspect]
     Active Substance: RELUGOLIX
     Indication: Prostate cancer
     Route: 048
  2. ORGOVYX [Suspect]
     Active Substance: RELUGOLIX
     Dosage: 120 MG, QD
     Route: 048
  3. CARVEDILOL [Concomitant]
     Active Substance: CARVEDILOL
  4. DOFETILIDE [Concomitant]
     Active Substance: DOFETILIDE
  5. PANTOPRAZOLE SODIUM [Concomitant]
     Active Substance: PANTOPRAZOLE SODIUM
  6. PRADAXA [Concomitant]
     Active Substance: DABIGATRAN ETEXILATE MESYLATE
  7. SIMVASTATIN [Concomitant]
     Active Substance: SIMVASTATIN
  8. SPIRONOLACTONE [Concomitant]
     Active Substance: SPIRONOLACTONE
  9. TRAMADOL [Concomitant]
     Active Substance: TRAMADOL
  10. ZETIA [Concomitant]
     Active Substance: EZETIMIBE
  11. Tramadol hcl ER [Concomitant]

REACTIONS (5)
  - Pain [Unknown]
  - Asthenia [Unknown]
  - Hot flush [Unknown]
  - Fatigue [Unknown]
  - Inappropriate schedule of product administration [Unknown]
